FAERS Safety Report 16638059 (Version 2)
Quarter: 2019Q3

REPORT INFORMATION
  Report Type: Spontaneous
  Country: US (occurrence: US)
  Receive Date: 20190726
  Receipt Date: 20190816
  Transmission Date: 20191004
  Serious: Yes (Hospitalization, Other)
  Sender: FDA-Public Use
  Company Number: US-PFIZER INC-2019317703

PATIENT
  Age: 84 Year
  Sex: Female
  Weight: 54.42 kg

DRUGS (3)
  1. AROMASIN [Interacting]
     Active Substance: EXEMESTANE
     Dosage: UNK, DAILY
     Dates: start: 20190701
  2. AROMASIN [Suspect]
     Active Substance: EXEMESTANE
     Indication: BREAST CANCER FEMALE
     Dosage: 25 MG, 1X/DAY
     Dates: start: 20190628
  3. PLAVIX [Interacting]
     Active Substance: CLOPIDOGREL BISULFATE
     Indication: CEREBROVASCULAR ACCIDENT
     Dosage: UNK, DAILY
     Dates: start: 20151226

REACTIONS (4)
  - Aortic aneurysm [Unknown]
  - Thrombosis [Unknown]
  - Drug interaction [Recovered/Resolved]
  - Cerebrovascular accident [Recovered/Resolved]
